FAERS Safety Report 8540358-5 (Version None)
Quarter: 2012Q3

REPORT INFORMATION
  Report Type: 
  Country: None (occurrence: None)
  Receive Date: 20120726
  Receipt Date: 20120717
  Transmission Date: 20120928
  Serious: Yes (Other)
  Sender: FDA-Public Use
  Company Number: US-ASTRAZENECA-2011SE21389

PATIENT
  Age: 62 Year
  Sex: Female

DRUGS (1)
  1. NEXIUM [Suspect]
     Route: 048

REACTIONS (9)
  - LOWER LIMB FRACTURE [None]
  - OESOPHAGEAL PERFORATION [None]
  - TEETH BRITTLE [None]
  - NERVOUSNESS [None]
  - DRUG DOSE OMISSION [None]
  - FALL [None]
  - TOOTH LOSS [None]
  - MALAISE [None]
  - WHEEZING [None]
